FAERS Safety Report 10069732 (Version 1)
Quarter: 2014Q2

REPORT INFORMATION
  Report Type: Spontaneous
  Country: US (occurrence: None)
  Receive Date: 20140409
  Receipt Date: 20140409
  Transmission Date: 20141212
  Serious: Yes (Other)
  Sender: FDA-Public Use
  Company Number: None

PATIENT
  Age: 56 Year
  Sex: 0

DRUGS (2)
  1. CYMBALTA [Suspect]
     Indication: DEPRESSION
  2. CYMBALTA [Suspect]
     Indication: PAIN

REACTIONS (3)
  - Hypertension [None]
  - Anxiety [None]
  - Insomnia [None]
